FAERS Safety Report 10061445 (Version 4)
Quarter: 2014Q2

REPORT INFORMATION
  Report Type: Spontaneous
  Country: US (occurrence: US)
  Receive Date: 20140407
  Receipt Date: 20140605
  Transmission Date: 20141212
  Serious: Yes (Other)
  Sender: FDA-Public Use
  Company Number: US-JNJFOC-20140400592

PATIENT
  Age: 8 Year
  Sex: Male

DRUGS (11)
  1. RISPERDAL [Suspect]
     Indication: BIPOLAR DISORDER
     Route: 048
     Dates: start: 19980420
  2. RISPERDAL [Suspect]
     Indication: BIPOLAR DISORDER
     Route: 048
     Dates: end: 19980601
  3. RISPERDAL [Suspect]
     Indication: BIPOLAR DISORDER
     Dosage: 1 MG TABLET, 3 MG AT MORNING AND 3 MG AT NIGHT
     Route: 048
     Dates: start: 1996
  4. DEPAKOTE [Suspect]
     Indication: PRODUCT USED FOR UNKNOWN INDICATION
     Route: 048
  5. DEPAKOTE [Suspect]
     Indication: PRODUCT USED FOR UNKNOWN INDICATION
     Route: 048
  6. CLONIDINE [Suspect]
     Indication: BIPOLAR DISORDER
     Route: 048
     Dates: start: 19980420, end: 1999
  7. ADDERALL [Suspect]
     Indication: BIPOLAR DISORDER
     Route: 048
     Dates: start: 19980420, end: 1999
  8. DEXEDRINE [Suspect]
     Indication: PRODUCT USED FOR UNKNOWN INDICATION
     Route: 048
  9. FLURAZEPAM [Suspect]
     Indication: PRODUCT USED FOR UNKNOWN INDICATION
     Route: 048
  10. TRIAMCINOLONE [Suspect]
     Indication: PRODUCT USED FOR UNKNOWN INDICATION
     Route: 065
  11. EUCERIN [Suspect]
     Indication: PRODUCT USED FOR UNKNOWN INDICATION
     Route: 065

REACTIONS (13)
  - Suicidal ideation [Recovering/Resolving]
  - Panic attack [Unknown]
  - Chest pain [Not Recovered/Not Resolved]
  - Gynaecomastia [Not Recovered/Not Resolved]
  - Mood swings [Unknown]
  - Mental disorder [Unknown]
  - Drug prescribing error [Unknown]
  - Generalised anxiety disorder [Not Recovered/Not Resolved]
  - Sleep apnoea syndrome [Unknown]
  - Liver function test abnormal [Unknown]
  - Hallucination, auditory [Recovering/Resolving]
  - Insomnia [Recovering/Resolving]
  - Musculoskeletal stiffness [Recovering/Resolving]
